FAERS Safety Report 12147042 (Version 5)
Quarter: 2016Q2

REPORT INFORMATION
  Report Type: Report from Study
  Country: JP (occurrence: JP)
  Receive Date: 20160304
  Receipt Date: 20160531
  Transmission Date: 20160815
  Serious: Yes (Hospitalization)
  Sender: FDA-Public Use
  Company Number: JP-DSJP-DSJ-2016-107441

PATIENT

DRUGS (26)
  1. ASPIRIN                            /00002701/ [Suspect]
     Active Substance: ASPIRIN
     Indication: THROMBOSIS PROPHYLAXIS
     Dosage: 200MG/DAY
     Route: 048
     Dates: start: 20151031, end: 20151031
  2. LUPRAC [Concomitant]
     Active Substance: TORSEMIDE
     Dosage: 8MG/DAY
     Route: 048
     Dates: start: 20151103, end: 20151120
  3. COVERSYL                           /00790702/ [Concomitant]
     Active Substance: PERINDOPRIL
     Dosage: 4MG/DAY
     Route: 048
     Dates: start: 20151104, end: 20151118
  4. LASIX [Concomitant]
     Active Substance: FUROSEMIDE
     Dosage: 20MG/DAY
     Route: 048
     Dates: start: 20151121
  5. DOBUTAMIN [Concomitant]
     Active Substance: DOBUTAMINE HYDROCHLORIDE
     Dosage: 300MG/DAY
     Route: 042
     Dates: start: 20151101, end: 20151109
  6. VANCOMYCIN [Concomitant]
     Active Substance: VANCOMYCIN
     Dosage: 1.5G/DAY
     Route: 042
     Dates: start: 20151109, end: 20151122
  7. HALFDIGOXIN [Concomitant]
     Active Substance: DIGOXIN
     Dosage: 62.5UG/DAY
     Route: 048
     Dates: start: 20160119
  8. EDOXABAN [Suspect]
     Active Substance: EDOXABAN TOSYLATE
     Indication: ATRIAL FIBRILLATION
     Dosage: 60 MG, QD
     Route: 048
     Dates: start: 20151104, end: 20160106
  9. XARELTO [Concomitant]
     Active Substance: RIVAROXABAN
     Dosage: 15MG/DAY
     Route: 048
     Dates: start: 20150901, end: 20151031
  10. SIGMART [Concomitant]
     Active Substance: NICORANDIL
     Dosage: 48MG/DAY
     Route: 042
     Dates: start: 20151031, end: 20151102
  11. CRESTOR [Concomitant]
     Active Substance: ROSUVASTATIN CALCIUM
     Dosage: 2.5MG/DAY
     Route: 048
     Dates: start: 20151104
  12. LUPRAC [Concomitant]
     Active Substance: TORSEMIDE
     Dosage: 4MG/DAY
     Route: 048
     Dates: start: 20160128
  13. ALDACTONE-A [Concomitant]
     Active Substance: SPIRONOLACTONE
     Dosage: 25MG/DAY
     Route: 048
     Dates: start: 20151106, end: 20151111
  14. HANP FOR INJECTION 1000 [Concomitant]
     Dosage: 2000UG/DAY
     Route: 042
     Dates: start: 20151031, end: 20151104
  15. EDOXABAN [Suspect]
     Active Substance: EDOXABAN TOSYLATE
     Dosage: 30 MG, QD
     Route: 048
     Dates: start: 20160108
  16. EFIENT [Suspect]
     Active Substance: PRASUGREL HYDROCHLORIDE
     Indication: THROMBOSIS PROPHYLAXIS
     Dosage: 20 MG, QD
     Route: 065
     Dates: start: 20151031, end: 20151031
  17. MAGMITT [Concomitant]
     Active Substance: MAGNESIUM OXIDE
     Dosage: 990MG/DAY
     Route: 048
     Dates: start: 20151103, end: 20151120
  18. NEXIUM [Concomitant]
     Active Substance: ESOMEPRAZOLE MAGNESIUM
     Dosage: 20MG/DAY
     Route: 048
     Dates: start: 20151120
  19. TAKEPRON [Concomitant]
     Active Substance: LANSOPRAZOLE
     Dosage: 15G/DAY
     Route: 048
     Dates: start: 20151101, end: 20151119
  20. EFIENT [Suspect]
     Active Substance: PRASUGREL HYDROCHLORIDE
     Dosage: 3.75 MG, QD
     Route: 065
     Dates: start: 20151101, end: 20160106
  21. ASPIRIN                            /00002701/ [Suspect]
     Active Substance: ASPIRIN
     Dosage: 100MG/DAY
     Route: 048
     Dates: start: 20151101
  22. BAYASPIRIN [Concomitant]
     Active Substance: ASPIRIN
     Dosage: 100MG/DAY
     Route: 048
     Dates: start: 20151031
  23. HEPARIN [Concomitant]
     Active Substance: HEPARIN SODIUM
     Dosage: 10000IU/DAY
     Route: 042
     Dates: start: 20151031, end: 20151101
  24. MAINTATE [Concomitant]
     Active Substance: BISOPROLOL FUMARATE
     Dosage: 0.625MG/DAY
     Route: 048
     Dates: start: 20151117
  25. LASIX [Concomitant]
     Active Substance: FUROSEMIDE
     Dosage: 80MG/DAY
     Route: 042
     Dates: start: 20151101, end: 20151113
  26. ALLOID G [Concomitant]
     Active Substance: SODIUM ALGINATE
     Dosage: 30ML/DAY
     Route: 048
     Dates: start: 20151120, end: 20160107

REACTIONS (2)
  - Device related infection [Recovered/Resolved]
  - Epistaxis [Recovered/Resolved]

NARRATIVE: CASE EVENT DATE: 20151109
